FAERS Safety Report 8997458 (Version 2)
Quarter: 2013Q1

REPORT INFORMATION
  Report Type: Report from Study
  Country: US (occurrence: US)
  Receive Date: 20130104
  Receipt Date: 20130307
  Transmission Date: 20140127
  Serious: No
  Sender: FDA-Public Use
  Company Number: US-BAYER-2013-001365

PATIENT
  Age: 82 Year
  Sex: Female
  Weight: 58.97 kg

DRUGS (10)
  1. XARELTO [Suspect]
     Indication: CEREBROVASCULAR ACCIDENT PROPHYLAXIS
     Dosage: 20 MG, QD
     Route: 048
     Dates: start: 20121220
  2. XARELTO [Suspect]
     Indication: ATRIAL FIBRILLATION
  3. ACETYLSALICYLIC ACID({=100 MG) [Concomitant]
     Indication: CARDIAC DISORDER
     Dosage: 81 MG, QD
     Route: 048
  4. ULTRAM [Concomitant]
     Indication: ARTHRITIS
     Dosage: 50 MG, UNK
     Route: 048
     Dates: start: 2011
  5. ULTRAM [Concomitant]
     Indication: ARTHRITIS
  6. SOTALOL [Concomitant]
     Indication: ATRIAL FIBRILLATION
     Dosage: 160 MG, QD
     Dates: start: 201005
  7. SOTALOL [Concomitant]
     Indication: ATRIAL FIBRILLATION
  8. ESTRADIOL [Concomitant]
     Indication: HORMONE REPLACEMENT THERAPY
     Dosage: .5 MG, QD
     Route: 048
     Dates: start: 201103
  9. ESTRADIOL [Concomitant]
     Indication: HORMONE REPLACEMENT THERAPY
  10. CALCIUM [Concomitant]
     Dosage: UNK
     Route: 048

REACTIONS (1)
  - Rash macular [Recovering/Resolving]
